FAERS Safety Report 9362766 (Version 3)
Quarter: 2013Q3

REPORT INFORMATION
  Report Type: Spontaneous
  Country: FR (occurrence: FR)
  Receive Date: 20130623
  Receipt Date: 20130916
  Transmission Date: 20140515
  Serious: Yes (Other)
  Sender: FDA-Public Use
  Company Number: FR-US-EMD SERONO, INC.-7218564

PATIENT
  Age: 25 Year
  Sex: Female

DRUGS (2)
  1. REBIF [Suspect]
     Indication: MULTIPLE SCLEROSIS
     Route: 058
     Dates: start: 201303, end: 20130611
  2. REBIF [Suspect]
     Route: 058
     Dates: start: 20130616

REACTIONS (3)
  - Keratitis [Recovered/Resolved]
  - Conjunctivitis [Recovered/Resolved]
  - Pyrexia [Recovered/Resolved]
